FAERS Safety Report 10420047 (Version 4)
Quarter: 2014Q4

REPORT INFORMATION
  Report Type: Spontaneous
  Country: US (occurrence: None)
  Receive Date: 20140828
  Receipt Date: 20141021
  Transmission Date: 20150528
  Serious: Yes (Hospitalization, Other)
  Sender: FDA-Public Use
  Company Number: 2014-US-007208

PATIENT
  Age: 17 Year
  Sex: Female
  Weight: 54.4 kg

DRUGS (11)
  1. XYREM [Suspect]
     Active Substance: SODIUM OXYBATE
     Indication: CATAPLEXY
     Route: 048
     Dates: start: 201312
  2. ATROPINE [Suspect]
     Active Substance: ATROPINE
     Indication: HYPOTENSION
  3. CONTRACEPTIVES [Concomitant]
     Active Substance: UNSPECIFIED INGREDIENT
  4. ATROPINE [Suspect]
     Active Substance: ATROPINE
     Indication: RESPIRATORY RATE DECREASED
  5. NUVIGIL [Concomitant]
     Active Substance: ARMODAFINIL
  6. PROVIGIL [Concomitant]
     Active Substance: MODAFINIL
     Indication: HYPOTENSION
  7. PROZAC [Suspect]
     Active Substance: FLUOXETINE HYDROCHLORIDE
     Indication: ANXIETY
     Route: 048
     Dates: start: 20140114
  8. XYREM [Suspect]
     Active Substance: SODIUM OXYBATE
     Indication: NARCOLEPSY
     Route: 048
     Dates: start: 201312
  9. ATROPINE [Suspect]
     Active Substance: ATROPINE
     Indication: HEART RATE DECREASED
  10. PROVIGIL [Concomitant]
     Active Substance: MODAFINIL
     Indication: RESPIRATORY RATE DECREASED
  11. PROVIGIL [Concomitant]
     Active Substance: MODAFINIL
     Indication: HEART RATE DECREASED

REACTIONS (12)
  - Off label use [None]
  - Crepitations [None]
  - Condition aggravated [None]
  - Vocal cord disorder [None]
  - Heart rate decreased [None]
  - Pain [None]
  - Blood pressure increased [None]
  - Dyspnoea [None]
  - Tonsillolith [None]
  - Abasia [None]
  - Hypotension [None]
  - Tonsillar hypertrophy [None]

NARRATIVE: CASE EVENT DATE: 201312
